FAERS Safety Report 19620483 (Version 1)
Quarter: 2021Q3

REPORT INFORMATION
  Report Type: Spontaneous
  Country: US (occurrence: US)
  Receive Date: 20210727
  Receipt Date: 20210727
  Transmission Date: 20211014
  Serious: No
  Sender: FDA-Public Use
  Company Number: None

PATIENT
  Age: 67 Year
  Sex: Female
  Weight: 69.4 kg

DRUGS (5)
  1. CENTRUM SILVER MULTIVITAMIN [Concomitant]
  2. SYNTHROID [Concomitant]
     Active Substance: LEVOTHYROXINE SODIUM
  3. SUTAB [Suspect]
     Active Substance: MAGNESIUM SULFATE\POTASSIUM CHLORIDE\SODIUM SULFATE
     Indication: COLONOSCOPY
     Dosage: ?QUANTITY:12 DF DOSAGE FORM;?OTHER FREQUENCY:TWO DOSES;?
     Route: 048
     Dates: start: 20210712, end: 20210712
  4. VITAMIN D3 [Concomitant]
     Active Substance: CHOLECALCIFEROL
  5. CALTRATE WITH VITAMIN D [Concomitant]
     Active Substance: CALCIUM CARBONATE\CHOLECALCIFEROL

REACTIONS (9)
  - Burning sensation [None]
  - Oral discomfort [None]
  - Haematemesis [None]
  - Dyspepsia [None]
  - Nausea [None]
  - Chest pain [None]
  - Diarrhoea [None]
  - Anorectal discomfort [None]
  - Vomiting [None]

NARRATIVE: CASE EVENT DATE: 20210712
